FAERS Safety Report 20405533 (Version 1)
Quarter: 2022Q1

REPORT INFORMATION
  Report Type: Spontaneous
  Country: US (occurrence: None)
  Receive Date: 20220130
  Receipt Date: 20220130
  Transmission Date: 20220423
  Serious: Yes (Life-Threatening)
  Sender: FDA-Public Use
  Company Number: None

PATIENT
  Age: 31 Year
  Sex: Female
  Weight: 72 kg

DRUGS (1)
  1. PHEXXI [Suspect]
     Active Substance: CITRIC ACID MONOHYDRATE\LACTIC ACID, L-\POTASSIUM BITARTRATE
     Indication: Contraception
     Dosage: OTHER QUANTITY : 1 SUPPOSITORY(IES);?FREQUENCY : AS NEEDED;?
     Route: 067
     Dates: start: 20210925

REACTIONS (5)
  - Ectopic pregnancy [None]
  - Maternal exposure timing unspecified [None]
  - Maternal drugs affecting foetus [None]
  - Product use complaint [None]
  - Pregnancy on contraceptive [None]

NARRATIVE: CASE EVENT DATE: 20211025
